FAERS Safety Report 8440910-1 (Version None)
Quarter: 2012Q2

REPORT INFORMATION
  Report Type: 
  Country: None (occurrence: None)
  Receive Date: 20120615
  Receipt Date: 20120606
  Transmission Date: 20120825
  Serious: Yes (Hospitalization)
  Sender: FDA-Public Use
  Company Number: US-BAYER-2012-042154

PATIENT
  Age: 25 Year
  Sex: Female
  Weight: 97.506 kg

DRUGS (4)
  1. PERCOCET [Concomitant]
     Indication: PAIN
     Dosage: 5-325 MG TO 2 TABLETS EVERY 4 TO 6 HOURS AS NEEDED
     Dates: start: 20100428
  2. YAZ [Suspect]
     Indication: CONTRACEPTION
     Dosage: UNK
     Dates: start: 20070111, end: 20100508
  3. SYNTHROID [Concomitant]
     Indication: THYROID DISORDER
     Dosage: 200 ?G, QD
     Dates: start: 20080301
  4. ANESTHETICS, LOCAL [Concomitant]
     Indication: BUNION OPERATION
     Dosage: UNK
     Dates: start: 20100428

REACTIONS (3)
  - DEEP VEIN THROMBOSIS [None]
  - PAIN IN EXTREMITY [None]
  - OEDEMA PERIPHERAL [None]
